FAERS Safety Report 11802522 (Version 1)
Quarter: 2015Q4

REPORT INFORMATION
  Report Type: Spontaneous
  Country: FR (occurrence: FR)
  Receive Date: 20151204
  Receipt Date: 20151204
  Transmission Date: 20160305
  Serious: Yes (Other)
  Sender: FDA-Public Use
  Company Number: FR-TEVA-613648ISR

PATIENT
  Sex: Male

DRUGS (6)
  1. AVODART [Concomitant]
     Active Substance: DUTASTERIDE
  2. MODIODAL [Suspect]
     Active Substance: MODAFINIL
     Indication: SLEEP APNOEA SYNDROME
     Dosage: 400 MILLIGRAM DAILY; STARTED SEVERAL YEARS AGO (NOS)
     Route: 048
  3. VESICARE [Concomitant]
     Active Substance: SOLIFENACIN SUCCINATE
  4. VENLAFAXINE [Concomitant]
     Active Substance: VENLAFAXINE HYDROCHLORIDE
  5. KARDEGIC [Concomitant]
     Active Substance: ASPIRIN LYSINE
  6. ZOCOR [Concomitant]
     Active Substance: SIMVASTATIN

REACTIONS (2)
  - Dementia [Unknown]
  - Confusional state [Unknown]

NARRATIVE: CASE EVENT DATE: 2011
